FAERS Safety Report 7704504-5 (Version None)
Quarter: 2011Q3

REPORT INFORMATION
  Report Type: 
  Country: None (occurrence: None)
  Receive Date: 20110823
  Receipt Date: 20110815
  Transmission Date: 20111222
  Serious: Yes (Hospitalization)
  Sender: FDA-Public Use
  Company Number: US-ELI_LILLY_AND_COMPANY-US201108004906

PATIENT
  Sex: Female

DRUGS (3)
  1. NOVOLOG [Concomitant]
  2. BYETTA [Suspect]
     Dosage: UNK
     Route: 058
  3. LANTUS [Concomitant]

REACTIONS (7)
  - BLOOD CALCIUM INCREASED [None]
  - NEPHROLITHIASIS [None]
  - NAUSEA [None]
  - FOOD AVERSION [None]
  - OFF LABEL USE [None]
  - DIARRHOEA [None]
  - ABDOMINAL PAIN [None]
